FAERS Safety Report 12162396 (Version 5)
Quarter: 2017Q3

REPORT INFORMATION
  Report Type: Spontaneous
  Country: FR (occurrence: FR)
  Receive Date: 20160309
  Receipt Date: 20170707
  Transmission Date: 20171127
  Serious: Yes (Hospitalization, Congenital Anomaly, Other)
  Sender: FDA-Public Use
  Company Number: FR-ABBVIE-16P-056-1577393-00

PATIENT
  Sex: Male

DRUGS (1)
  1. DEPAKINE [Suspect]
     Active Substance: VALPROATE SODIUM
     Indication: MATERNAL EXPOSURE TIMING UNSPECIFIED
     Route: 064
     Dates: start: 200502, end: 20051013

REACTIONS (19)
  - Syndactyly [Unknown]
  - Congenital anomaly [Not Recovered/Not Resolved]
  - Language disorder [Not Recovered/Not Resolved]
  - Hypotension [Unknown]
  - Sinus bradycardia [Unknown]
  - Wolff-Parkinson-White syndrome [Unknown]
  - Myopia [Not Recovered/Not Resolved]
  - Congenital hand malformation [Unknown]
  - Atrial septal defect [Unknown]
  - Psychomotor skills impaired [Not Recovered/Not Resolved]
  - Developmental hip dysplasia [Unknown]
  - Heart disease congenital [Recovered/Resolved]
  - Disturbance in attention [Not Recovered/Not Resolved]
  - Cardiac murmur [Unknown]
  - Foetal exposure during pregnancy [Unknown]
  - Gastrooesophageal reflux disease [Unknown]
  - Gait disturbance [Not Recovered/Not Resolved]
  - Respiratory distress [Not Recovered/Not Resolved]
  - Gastrointestinal disorder [Recovered/Resolved]

NARRATIVE: CASE EVENT DATE: 2005
